FAERS Safety Report 10100447 (Version 1)
Quarter: 2014Q2

REPORT INFORMATION
  Report Type: Spontaneous
  Country: GB (occurrence: GB)
  Receive Date: 20140423
  Receipt Date: 20140423
  Transmission Date: 20141212
  Serious: Yes (Hospitalization)
  Sender: FDA-Public Use
  Company Number: PHFR2014GB002987

PATIENT
  Age: 18 Year
  Sex: Female
  Weight: 56 kg

DRUGS (3)
  1. TEGRETOL [Suspect]
     Indication: EPILEPSY
     Dosage: 1000 MG (600 MG AT MORNING AND 400 MG AT NIGHT)
     Route: 048
  2. TEGRETOL [Suspect]
     Dosage: UNK UKN, UNK
     Route: 048
  3. LAMOTRIGINE [Concomitant]
     Indication: EPILEPSY
     Dosage: 100 MG, BID

REACTIONS (3)
  - Toxicity to various agents [Unknown]
  - Confusional state [Recovered/Resolved]
  - Somnolence [Recovered/Resolved]
